FAERS Safety Report 19284325 (Version 3)
Quarter: 2021Q2

REPORT INFORMATION
  Report Type: Spontaneous
  Country: ES (occurrence: ES)
  Receive Date: 20210521
  Receipt Date: 20210615
  Transmission Date: 20210717
  Serious: Yes (Hospitalization)
  Sender: FDA-Public Use
  Company Number: ES-ALLERGAN-2119124US

PATIENT
  Sex: Male

DRUGS (1)
  1. GANFORT [Suspect]
     Active Substance: BIMATOPROST\TIMOLOL
     Indication: ACCIDENTAL EXPOSURE TO PRODUCT BY CHILD
     Dosage: 1 DF, SINGLE
     Route: 048
     Dates: start: 20210515, end: 20210515

REACTIONS (2)
  - Accidental overdose [Unknown]
  - Accidental exposure to product by child [Unknown]

NARRATIVE: CASE EVENT DATE: 20210515
